FAERS Safety Report 25797994 (Version 1)
Quarter: 2025Q3

REPORT INFORMATION
  Report Type: Spontaneous
  Country: EU (occurrence: EU)
  Receive Date: 20250912
  Receipt Date: 20250912
  Transmission Date: 20251021
  Serious: Yes (Hospitalization, Other)
  Sender: TAKEDA
  Company Number: None

PATIENT
  Age: 31 Year
  Sex: Female

DRUGS (60)
  1. CARBAMAZEPINE [Suspect]
     Active Substance: CARBAMAZEPINE
     Indication: Pain
     Dosage: 200 MILLIGRAM, QD
     Dates: start: 200709
  2. CARBAMAZEPINE [Suspect]
     Active Substance: CARBAMAZEPINE
     Dosage: 600 MILLIGRAM, QD
  3. FENTANYL [Suspect]
     Active Substance: FENTANYL
     Indication: Pain
     Dosage: 100 MICROGRAM, Q72H
     Dates: start: 201003
  4. PANTOPRAZOLE [Suspect]
     Active Substance: PANTOPRAZOLE
     Indication: Product used for unknown indication
  5. ACETAMINOPHEN\TRAMADOL [Suspect]
     Active Substance: ACETAMINOPHEN\TRAMADOL
     Indication: Pain
     Dosage: UNK UNK, QD
     Dates: start: 200709
  6. ACETAMINOPHEN\TRAMADOL [Suspect]
     Active Substance: ACETAMINOPHEN\TRAMADOL
     Dosage: UNK, UNK, TID
  7. ACETAMINOPHEN\TRAMADOL [Suspect]
     Active Substance: ACETAMINOPHEN\TRAMADOL
     Dosage: UNK UNK, QD
     Dates: start: 200805
  8. ACETAMINOPHEN\TRAMADOL [Suspect]
     Active Substance: ACETAMINOPHEN\TRAMADOL
     Dosage: 37.5 MG, QD
     Dates: start: 200904
  9. ACETAMINOPHEN\TRAMADOL [Suspect]
     Active Substance: ACETAMINOPHEN\TRAMADOL
  10. OXYCODONE [Suspect]
     Active Substance: OXYCODONE
     Indication: Pain
     Dosage: 10 MILLIGRAM, QD
     Dates: start: 200904
  11. OXYCODONE [Suspect]
     Active Substance: OXYCODONE
     Dosage: 10 MILLIGRAM, TID
  12. OXYCODONE [Suspect]
     Active Substance: OXYCODONE
     Dosage: 30 MILLIGRAM, QD
  13. OXYCODONE [Suspect]
     Active Substance: OXYCODONE
     Dosage: 13 MILLIGRAM, QD
     Dates: start: 201003
  14. OXYCODONE [Suspect]
     Active Substance: OXYCODONE
     Dosage: 10 MILLIGRAM, QD
  15. ALPRAZOLAM [Suspect]
     Active Substance: ALPRAZOLAM
     Indication: Pain
     Dosage: 0.5 MG, TID
     Dates: start: 200805
  16. ALPRAZOLAM [Suspect]
     Active Substance: ALPRAZOLAM
     Indication: Persistent depressive disorder
  17. FEXOFENADINE HYDROCHLORIDE [Suspect]
     Active Substance: FEXOFENADINE HYDROCHLORIDE
     Indication: Headache
  18. FEXOFENADINE HYDROCHLORIDE [Suspect]
     Active Substance: FEXOFENADINE HYDROCHLORIDE
     Indication: Pain
  19. BACLOFEN [Suspect]
     Active Substance: BACLOFEN
     Indication: Pain
     Dosage: 10 MILLIGRAM, QD
     Dates: start: 200709
  20. BACLOFEN [Suspect]
     Active Substance: BACLOFEN
     Dosage: 25 MILLIGRAM, QD
     Dates: start: 200805
  21. BACLOFEN [Suspect]
     Active Substance: BACLOFEN
     Dosage: 25 MILLIGRAM, TID
     Dates: start: 200904
  22. BACLOFEN [Suspect]
     Active Substance: BACLOFEN
     Dosage: 25 MILLIGRAM, TID
     Dates: start: 201003
  23. GINKGO [Suspect]
     Active Substance: GINKGO
     Indication: Pain
  24. GINKGO [Suspect]
     Active Substance: GINKGO
     Indication: Rash
  25. RANITIDINE [Suspect]
     Active Substance: RANITIDINE
     Indication: Product used for unknown indication
     Dosage: 300 MILLIGRAM, QD
     Dates: start: 200709
  26. DIAZEPAM [Suspect]
     Active Substance: DIAZEPAM
     Indication: Pain
     Dosage: 5 MILLIGRAM, QD
     Dates: start: 200709
  27. DIAZEPAM [Suspect]
     Active Substance: DIAZEPAM
     Dosage: 2 MILLIGRAM, QD
     Dates: start: 201003
  28. DIAZEPAM [Suspect]
     Active Substance: DIAZEPAM
     Dosage: 2 MILLIGRAM, QD
  29. DIAZEPAM [Suspect]
     Active Substance: DIAZEPAM
     Dosage: 5 MILLIGRAM, QD
  30. NEUROBION FORTE [Suspect]
     Active Substance: CYANOCOBALAMIN\PYRIDOXINE HYDROCHLORIDE\THIAMINE DISULFIDE
     Indication: Pain
  31. NEUROBION FORTE [Suspect]
     Active Substance: CYANOCOBALAMIN\PYRIDOXINE HYDROCHLORIDE\THIAMINE DISULFIDE
     Indication: Asthenia
  32. GABAPENTIN [Suspect]
     Active Substance: GABAPENTIN
     Indication: Pain
     Dosage: 300 MILLIGRAM, QD
     Dates: start: 200904
  33. GABAPENTIN [Suspect]
     Active Substance: GABAPENTIN
     Indication: Mental disorder
     Dosage: 300 MILLIGRAM, TID
  34. IBUPROFEN [Suspect]
     Active Substance: IBUPROFEN
     Indication: Pain
  35. ESOMEPRAZOLE [Suspect]
     Active Substance: ESOMEPRAZOLE
     Indication: Asthenia
     Dosage: 20 MILLIGRAM, QD
     Dates: start: 201003
  36. ESOMEPRAZOLE [Suspect]
     Active Substance: ESOMEPRAZOLE
     Dosage: 20 MILLIGRAM, BID
  37. LEVOTHYROXINE SODIUM [Suspect]
     Active Substance: LEVOTHYROXINE SODIUM
     Indication: Pain
  38. LEVOTHYROXINE SODIUM [Suspect]
     Active Substance: LEVOTHYROXINE SODIUM
     Indication: Quadriparesis
  39. LEVOTHYROXINE SODIUM [Suspect]
     Active Substance: LEVOTHYROXINE SODIUM
  40. LEVOTHYROXINE SODIUM [Suspect]
     Active Substance: LEVOTHYROXINE SODIUM
  41. LEVOTHYROXINE SODIUM [Suspect]
     Active Substance: LEVOTHYROXINE SODIUM
  42. LEVOTHYROXINE SODIUM [Suspect]
     Active Substance: LEVOTHYROXINE SODIUM
  43. PREGABALIN [Suspect]
     Active Substance: PREGABALIN
     Indication: Pain
     Dosage: 300 MILLIGRAM, QD
     Dates: start: 201003
  44. BUPRENORPHINE [Suspect]
     Active Substance: BUPRENORPHINE
     Indication: Bradyphrenia
     Dosage: 70 MICROGRAM, Q72H
     Dates: start: 200904
  45. BUPRENORPHINE [Suspect]
     Active Substance: BUPRENORPHINE
     Indication: Pain
  46. PIROXICAM [Suspect]
     Active Substance: PIROXICAM
     Indication: Pain
  47. SERTRALINE [Suspect]
     Active Substance: SERTRALINE HYDROCHLORIDE
     Indication: Pain
     Dosage: 50 MILLIGRAM, QD
     Dates: start: 200805
  48. SERTRALINE [Suspect]
     Active Substance: SERTRALINE HYDROCHLORIDE
     Indication: Headache
     Dosage: 50 MILLIGRAM, QD
     Dates: start: 200904
  49. ALPRAZOLAM [Concomitant]
     Active Substance: ALPRAZOLAM
     Indication: Persistent depressive disorder
  50. TRAMADOL [Concomitant]
     Active Substance: TRAMADOL
     Indication: Pain
     Dosage: 37.5 MILLIGRAM, TID
     Dates: start: 200805
  51. DIAZEPAM [Concomitant]
     Active Substance: DIAZEPAM
     Indication: Pain
  52. DIAZEPAM [Concomitant]
     Active Substance: DIAZEPAM
     Dosage: UNK, QD
     Dates: start: 201003
  53. DIAZEPAM [Concomitant]
     Active Substance: DIAZEPAM
     Dosage: 5 MILLIGRAM, QD
     Dates: start: 200709
  54. CARBAMAZEPINE [Concomitant]
     Active Substance: CARBAMAZEPINE
     Indication: Pain
  55. CARBAMAZEPINE [Concomitant]
     Active Substance: CARBAMAZEPINE
     Dosage: 200 MILLIGRAM, TID
     Dates: start: 200709
  56. GABAPENTIN [Concomitant]
     Active Substance: GABAPENTIN
     Indication: Product used for unknown indication
  57. SERTRALINE [Concomitant]
     Active Substance: SERTRALINE HYDROCHLORIDE
     Indication: Product used for unknown indication
  58. ESOMEPRAZOLE [Concomitant]
     Active Substance: ESOMEPRAZOLE
     Indication: Asthenia
     Dosage: 20 MILLIGRAM, BID
     Dates: start: 201003
  59. BUPRENORPHINE [Concomitant]
     Active Substance: BUPRENORPHINE
     Indication: Product used for unknown indication
  60. BACLOFEN [Concomitant]
     Active Substance: BACLOFEN
     Indication: Product used for unknown indication

REACTIONS (38)
  - Ill-defined disorder [Unknown]
  - Agitation [Unknown]
  - Neurosis [Unknown]
  - Disturbance in attention [Unknown]
  - Ataxia [Unknown]
  - Anxiety [Unknown]
  - Pruritus [Unknown]
  - Syncope [Unknown]
  - Headache [Unknown]
  - Pain [Unknown]
  - Nausea [Unknown]
  - Rash [Unknown]
  - Asthenia [Unknown]
  - Conversion disorder [Unknown]
  - Sensory disturbance [Unknown]
  - Erythema [Unknown]
  - Fatigue [Unknown]
  - Confusional state [Unknown]
  - Vomiting [Unknown]
  - Cognitive disorder [Unknown]
  - Schizophrenia [Unknown]
  - Constipation [Unknown]
  - Diplopia [Unknown]
  - Psychomotor skills impaired [Unknown]
  - Oedema [Unknown]
  - Euphoric mood [Unknown]
  - Feeling abnormal [Unknown]
  - Persistent depressive disorder [Unknown]
  - Sedation [Unknown]
  - Depression [Unknown]
  - Gastrointestinal motility disorder [Unknown]
  - Musculoskeletal stiffness [Unknown]
  - Loss of consciousness [Unknown]
  - Quadriparesis [Unknown]
  - Dizziness [Unknown]
  - Condition aggravated [Unknown]
  - Drug ineffective [Unknown]
  - Drug interaction [Unknown]
